FAERS Safety Report 5362176-1 (Version None)
Quarter: 2007Q2

REPORT INFORMATION
  Report Type: 
  Country: None (occurrence: None)
  Receive Date: 20070619
  Receipt Date: 20070611
  Transmission Date: 20071010
  Serious: Yes (Other)
  Sender: FDA-Public Use
  Company Number: US-SOLVAY-00207032693

PATIENT
  Age: 0 Day
  Sex: Female
  Weight: 3.232 kg

DRUGS (3)
  1. URSODIOL [Concomitant]
     Indication: CHOLESTASIS
     Dosage: DAILY DOSE: 1500 MILLIGRAM(S)
     Route: 064
     Dates: start: 20060821, end: 20070317
  2. PROMETRIUM [Suspect]
     Indication: ACCIDENTAL EXPOSURE
     Dosage: DAILY DOSE: 400 MILLIGRAM(S)
     Route: 064
     Dates: start: 20060815, end: 20061015
  3. VITAMIN K [Concomitant]
     Indication: COAGULOPATHY
     Dosage: DAILY DOSE: 10 MILLIGRAM(S)
     Route: 064
     Dates: start: 20070117, end: 20070317

REACTIONS (2)
  - PNEUMOMEDIASTINUM [None]
  - PNEUMOTHORAX [None]
